FAERS Safety Report 5543074-7 (Version None)
Quarter: 2007Q4

REPORT INFORMATION
  Report Type: 
  Country: None (occurrence: None)
  Receive Date: 20071210
  Receipt Date: 20071128
  Transmission Date: 20080405
  Serious: Yes (Other)
  Sender: FDA-Public Use
  Company Number: BR-PFIZER INC-2007101199

PATIENT
  Sex: Male
  Weight: 110 kg

DRUGS (2)
  1. VIAGRA [Suspect]
     Indication: ERECTILE DYSFUNCTION
     Route: 048
  2. ENALAPRIL MALEATE [Concomitant]

REACTIONS (3)
  - CIRCUMCISION [None]
  - DRUG INEFFECTIVE [None]
  - HYPERTENSION [None]
